FAERS Safety Report 7950808-0 (Version None)
Quarter: 2011Q4

REPORT INFORMATION
  Report Type: 
  Country: None (occurrence: None)
  Receive Date: 20111201
  Receipt Date: 20111128
  Transmission Date: 20120403
  Serious: Yes (Disabling, Other)
  Sender: FDA-Public Use
  Company Number: US-PFIZER INC-2011147811

PATIENT
  Sex: Female

DRUGS (3)
  1. TRAZODONE [Concomitant]
     Indication: INSOMNIA
     Dosage: UNK
     Dates: start: 20090201, end: 20091101
  2. CHANTIX [Suspect]
     Indication: SMOKING CESSATION THERAPY
     Dosage: UNK
     Dates: start: 20090813, end: 20090901
  3. NITROLINGUAL [Concomitant]
     Indication: MYOCARDIAL INFARCTION
     Dosage: UNK
     Dates: start: 20020101

REACTIONS (3)
  - SUICIDAL IDEATION [None]
  - LOSS OF CONSCIOUSNESS [None]
  - DEPRESSION [None]
